FAERS Safety Report 18700023 (Version 1)
Quarter: 2021Q1

REPORT INFORMATION
  Report Type: Report from Study
  Country: US (occurrence: US)
  Receive Date: 20210104
  Receipt Date: 20210104
  Transmission Date: 20210419
  Serious: Yes (Hospitalization, Other)
  Sender: FDA-Public Use
  Company Number: US-B.I. PHARMACEUTICALS,INC./RIDGEFIELD-2020-MR-017942

PATIENT
  Age: 80 Year
  Sex: Female

DRUGS (2)
  1. OFEV [Suspect]
     Active Substance: NINTEDANIB
     Dosage: 150MG BID
     Route: 048
     Dates: start: 20200322
  2. OFEV [Suspect]
     Active Substance: NINTEDANIB
     Indication: IDIOPATHIC PULMONARY FIBROSIS
     Dosage: 150MG BID
     Route: 048
     Dates: start: 20200402, end: 20200727

REACTIONS (6)
  - Gait inability [Not Recovered/Not Resolved]
  - Diarrhoea [Not Recovered/Not Resolved]
  - Cerebrovascular accident [Recovering/Resolving]
  - Cerebrovascular accident [Recovered/Resolved with Sequelae]
  - Muscular weakness [Not Recovered/Not Resolved]
  - Blood potassium increased [Unknown]

NARRATIVE: CASE EVENT DATE: 202004
